FAERS Safety Report 9260853 (Version 1)
Quarter: 2013Q1

REPORT INFORMATION
  Report Type: Spontaneous
  Country: US (occurrence: None)
  Receive Date: 20121212
  Receipt Date: 20121212
  Transmission Date: 20140127
  Serious: No
  Sender: FDA-Public Use
  Company Number: 1209USA002452

PATIENT
  Age: 57 Year
  Sex: Male
  Weight: 88.4 kg

DRUGS (8)
  1. VICTRELIS (BOCEPREVIR) CAPSULE [Suspect]
     Route: 048
  2. REBETOL (RIBAVIRIN) CAPSULE [Suspect]
  3. PEGASYS (PEGINTERFERON ALFA-2A) [Suspect]
  4. LUNESTA (ESZOPIDONE) [Concomitant]
  5. HYDROCHLOROTHIAZIDE (+) LISINOPRIL (HYDROCHLOROTHIAZIDE, LISINOPRIL) [Concomitant]
  6. LYRICA (PREGABALIN) [Concomitant]
  7. VITAMINS (UNSPECIFIED) (VITAMINS (UNSPECIFIED)) [Concomitant]
  8. OMEGA-3 MARINE TRIGLYCERIDES (OMEGA-3 MARINE TRIGLYCERIDES) [Concomitant]

REACTIONS (4)
  - Hypotension [None]
  - White blood cell count decreased [None]
  - Fatigue [None]
  - Red blood cell count decreased [None]
